FAERS Safety Report 6344541-9 (Version None)
Quarter: 2009Q3

REPORT INFORMATION
  Report Type: 
  Country: None (occurrence: None)
  Receive Date: 20090903
  Receipt Date: 20090817
  Transmission Date: 20100115
  Serious: Yes (Death, Hospitalization)
  Sender: FDA-Public Use
  Company Number: 2008AL009042

PATIENT
  Age: 49 Year
  Sex: Male

DRUGS (18)
  1. DIGOXIN [Suspect]
     Dosage: PO
     Route: 048
     Dates: start: 20060301
  2. LOPRESSOR [Concomitant]
  3. AMIODARONE HCL [Concomitant]
  4. DOBUTAMINE HCL [Concomitant]
  5. MEDROXYPROGESTERONE [Concomitant]
  6. THEOPHYLLINE [Concomitant]
  7. LASIX [Concomitant]
  8. POTASSIUM CHLORIDE [Concomitant]
  9. SPIRONOLACTONE [Concomitant]
  10. DIGOXIN [Concomitant]
  11. DIOVAN [Concomitant]
  12. COREG [Concomitant]
  13. KAYCEL [Concomitant]
  14. LISINOPRIL [Concomitant]
  15. ASPIRIN [Concomitant]
  16. ZOSYN [Concomitant]
  17. DOBUTAMINE HCL [Concomitant]
  18. NEO-SYNEPHRINOL [Concomitant]

REACTIONS (46)
  - ACTIVATED PARTIAL THROMBOPLASTIN TIME SHORTENED [None]
  - ACUTE RESPIRATORY FAILURE [None]
  - AMNESIA [None]
  - ANAEMIA [None]
  - ARRHYTHMIA [None]
  - ASTHENIA [None]
  - ATRIAL FIBRILLATION [None]
  - BACTERIA URINE IDENTIFIED [None]
  - BLOOD TRIGLYCERIDES INCREASED [None]
  - CARDIAC ARREST [None]
  - CHRONIC OBSTRUCTIVE PULMONARY DISEASE [None]
  - CHRONIC RESPIRATORY FAILURE [None]
  - COMA [None]
  - CONFUSIONAL STATE [None]
  - CORONARY ARTERY DISEASE [None]
  - CYANOSIS [None]
  - DEEP VEIN THROMBOSIS [None]
  - DISORIENTATION [None]
  - DIZZINESS [None]
  - DYSPNOEA [None]
  - DYSURIA [None]
  - FATIGUE [None]
  - GASTROINTESTINAL HAEMORRHAGE [None]
  - GENERALISED OEDEMA [None]
  - HAEMOGLOBIN INCREASED [None]
  - HYPOKALAEMIA [None]
  - HYPONATRAEMIA [None]
  - HYPOTENSION [None]
  - LETHARGY [None]
  - NAUSEA [None]
  - OBSTRUCTIVE AIRWAYS DISORDER [None]
  - OEDEMA [None]
  - PNEUMONIA [None]
  - PRESYNCOPE [None]
  - RENAL FAILURE [None]
  - RESPIRATORY FAILURE [None]
  - RESTLESSNESS [None]
  - SOMNOLENCE [None]
  - STAPHYLOCOCCAL INFECTION [None]
  - TACHYCARDIA [None]
  - THROMBOCYTOPENIA [None]
  - TINEA CRURIS [None]
  - TREATMENT NONCOMPLIANCE [None]
  - VENTRICULAR FIBRILLATION [None]
  - VENTRICULAR TACHYCARDIA [None]
  - VOMITING [None]
